FAERS Safety Report 7319892-1 (Version None)
Quarter: 2011Q1

REPORT INFORMATION
  Report Type: 
  Country: None (occurrence: None)
  Receive Date: 20110228
  Receipt Date: 20101111
  Transmission Date: 20110831
  Serious: No
  Sender: FDA-Public Use
  Company Number: A0892879A

PATIENT
  Sex: Male

DRUGS (2)
  1. LAMICTAL [Suspect]
     Indication: EPILEPSY
     Dosage: 1TAB PER DAY
     Route: 048
  2. KEPPRA [Concomitant]
     Dosage: 3TAB PER DAY

REACTIONS (3)
  - DYSPHAGIA [None]
  - VOMITING [None]
  - FOREIGN BODY [None]
